FAERS Safety Report 7968371-7 (Version None)
Quarter: 2011Q4

REPORT INFORMATION
  Report Type: 
  Country: None (occurrence: None)
  Receive Date: 20111207
  Receipt Date: 20111125
  Transmission Date: 20120403
  Serious: Yes (Other)
  Sender: FDA-Public Use
  Company Number: 2011MA017100

PATIENT
  Age: 29 Year
  Sex: Male

DRUGS (2)
  1. IBUPROFEN [Suspect]
     Indication: TONSILLITIS
     Dates: start: 20110401
  2. PHENOXYMETHYLPENICILLIN [Suspect]
     Indication: TONSILLITIS
     Dosage: 250 MG
     Dates: start: 20110401

REACTIONS (12)
  - DISTURBANCE IN ATTENTION [None]
  - FEELING ABNORMAL [None]
  - HEART RATE INCREASED [None]
  - MUSCULOSKELETAL DISCOMFORT [None]
  - DISORIENTATION [None]
  - HYPERCHLORHYDRIA [None]
  - HYPOAESTHESIA [None]
  - MUSCULAR WEAKNESS [None]
  - NAUSEA [None]
  - SENSORY DISTURBANCE [None]
  - ARTHROPATHY [None]
  - DYSPNOEA [None]
